FAERS Safety Report 5248762-8 (Version None)
Quarter: 2007Q1

REPORT INFORMATION
  Report Type: 
  Country: None (occurrence: None)
  Receive Date: 20070228
  Receipt Date: 20060113
  Transmission Date: 20070707
  Serious: No
  Sender: FDA-Public Use
  Company Number: US-GLAXOSMITHKLINE-A0589228A

PATIENT
  Sex: Male

DRUGS (2)
  1. VALTREX [Suspect]
     Dosage: 500MG THREE TIMES PER DAY
     Route: 048
     Dates: start: 20060109, end: 20060112
  2. ZOVIRAX [Suspect]
     Route: 061

REACTIONS (1)
  - DRUG INEFFECTIVE [None]
